FAERS Safety Report 19609732 (Version 1)
Quarter: 2021Q3

REPORT INFORMATION
  Report Type: Spontaneous
  Country: US (occurrence: US)
  Receive Date: 20210726
  Receipt Date: 20210726
  Transmission Date: 20211014
  Serious: Yes (Other)
  Sender: FDA-Public Use
  Company Number: None

PATIENT
  Age: 48 Year
  Sex: Female
  Weight: 94.5 kg

DRUGS (25)
  1. SUCRALFATE. [Concomitant]
     Active Substance: SUCRALFATE
  2. MULTIVITAMIN [Concomitant]
     Active Substance: VITAMINS
  3. ARMODAFINIL. [Concomitant]
     Active Substance: ARMODAFINIL
  4. HYDROCODONE [Concomitant]
     Active Substance: HYDROCODONE
  5. NITROGLYCERIN. [Concomitant]
     Active Substance: NITROGLYCERIN
  6. TREXIMET [Concomitant]
     Active Substance: NAPROXEN SODIUM\SUMATRIPTAN SUCCINATE
  7. IBUPROFEN. [Concomitant]
     Active Substance: IBUPROFEN
  8. BIOTIN [Concomitant]
     Active Substance: BIOTIN
  9. ALPRAZOLAM. [Concomitant]
     Active Substance: ALPRAZOLAM
  10. CARVEDILOL. [Concomitant]
     Active Substance: CARVEDILOL
  11. OXYBUTYNIN. [Concomitant]
     Active Substance: OXYBUTYNIN CHLORIDE
  12. NAPROXEN. [Concomitant]
     Active Substance: NAPROXEN
  13. LEVOFLOXACIN. [Suspect]
     Active Substance: LEVOFLOXACIN
     Indication: ANTIBIOTIC THERAPY
     Dosage: ?          QUANTITY:10 TABLET(S);?
     Route: 048
  14. ADDERALL [Concomitant]
     Active Substance: AMPHETAMINE ASPARTATE\AMPHETAMINE SULFATE\DEXTROAMPHETAMINE SACCHARATE\DEXTROAMPHETAMINE SULFATE
  15. CALCIUM + BONE CHEWS [Concomitant]
  16. ASPIRIN. [Concomitant]
     Active Substance: ASPIRIN
  17. DICLOFENAC [Concomitant]
     Active Substance: DICLOFENAC
  18. DULOXETINE. [Concomitant]
     Active Substance: DULOXETINE
  19. PRAZOSIN. [Concomitant]
     Active Substance: PRAZOSIN
  20. INDERAL [Concomitant]
     Active Substance: PROPRANOLOL HYDROCHLORIDE
  21. FLUOXETINE [Concomitant]
     Active Substance: FLUOXETINE HYDROCHLORIDE
  22. GABAPENTIN. [Concomitant]
     Active Substance: GABAPENTIN
  23. OMEPRAZOLE. [Concomitant]
     Active Substance: OMEPRAZOLE
  24. TYLENOL [Concomitant]
     Active Substance: ACETAMINOPHEN
  25. PROAIR INHALER [Concomitant]
     Active Substance: ALBUTEROL SULFATE

REACTIONS (5)
  - Hypokinesia [None]
  - Pain in jaw [None]
  - Muscular weakness [None]
  - Joint noise [None]
  - Jaw clicking [None]

NARRATIVE: CASE EVENT DATE: 20210724
